FAERS Safety Report 9387852 (Version 1)
Quarter: 2013Q3

REPORT INFORMATION
  Report Type: Report from Study
  Country: FR (occurrence: FR)
  Receive Date: 20130708
  Receipt Date: 20130708
  Transmission Date: 20140515
  Serious: Yes (Other)
  Sender: FDA-Public Use
  Company Number: FR-BAXTER-2013BAX025474

PATIENT
  Sex: 0

DRUGS (1)
  1. FEIBA 1000 U/20 ML, POUDRE ET SOLVANT POUR SOLUTION INJECTABLE [Suspect]
     Indication: PRODUCT USED FOR UNKNOWN INDICATION
     Dosage: STANDARD
     Route: 042

REACTIONS (1)
  - Drug ineffective [Recovered/Resolved]
